FAERS Safety Report 6577882-0 (Version None)
Quarter: 2010Q1

REPORT INFORMATION
  Report Type: 
  Country: None (occurrence: None)
  Receive Date: 20100211
  Receipt Date: 20100201
  Transmission Date: 20100710
  Serious: Yes (Hospitalization, Other)
  Sender: FDA-Public Use
  Company Number: US-PFIZER INC-2010013217

PATIENT
  Sex: Female

DRUGS (2)
  1. XANAX [Suspect]
  2. AVONEX [Suspect]
     Indication: MULTIPLE SCLEROSIS
     Dosage: 30 MCG IM WEEKLY
     Dates: start: 20051206

REACTIONS (2)
  - OVERDOSE [None]
  - SUICIDE ATTEMPT [None]
